FAERS Safety Report 9474984 (Version 3)
Quarter: 2013Q4

REPORT INFORMATION
  Report Type: Spontaneous
  Country: IL (occurrence: None)
  Receive Date: 20130820
  Receipt Date: 20131108
  Transmission Date: 20140711
  Serious: Yes (Other)
  Sender: FDA-Public Use
  Company Number: 7230844

PATIENT
  Age: 38 Year
  Sex: Female

DRUGS (3)
  1. EUTHYROX [Suspect]
     Indication: HYPOTHYROIDISM
     Dosage: (50 MCG,5 IN 1 WK)
     Route: 048
     Dates: start: 201202
  2. OMEGA 3 (FISH OIL) [Concomitant]
  3. COMPLEX B /00653501/ [Concomitant]

REACTIONS (5)
  - Autoimmune thyroiditis [None]
  - Pruritus [None]
  - Alopecia [None]
  - Ear disorder [None]
  - Ear discomfort [None]
